FAERS Safety Report 10560853 (Version 1)
Quarter: 2014Q4

REPORT INFORMATION
  Report Type: Spontaneous
  Country: US (occurrence: None)
  Receive Date: 20141031
  Receipt Date: 20141031
  Transmission Date: 20150529
  Serious: No
  Sender: FDA-Public Use
  Company Number: None

PATIENT
  Age: 53 Year
  Sex: Female
  Weight: 56.7 kg

DRUGS (4)
  1. VIRAMUNE [Concomitant]
     Active Substance: NEVIRAPINE
  2. RISPERDAL [Concomitant]
     Active Substance: RISPERIDONE
  3. ABILIFY [Suspect]
     Active Substance: ARIPIPRAZOLE
     Indication: SCHIZOPHRENIA
     Dosage: 2 TABLETS, QD, ORAL
     Route: 048
     Dates: start: 20140905, end: 20141016
  4. TRUVADA [Concomitant]
     Active Substance: EMTRICITABINE\TENOFOVIR DISOPROXIL FUMARATE

REACTIONS (1)
  - Agranulocytosis [None]

NARRATIVE: CASE EVENT DATE: 20141011
